FAERS Safety Report 8823706 (Version 1)
Quarter: 2012Q4

REPORT INFORMATION
  Report Type: 
  Country: AT (occurrence: AT)
  Receive Date: 20121003
  Receipt Date: 20121003
  Transmission Date: 20130627
  Serious: Yes (Other)
  Sender: FDA-Public Use
  Company Number: AT-PFIZER INC-2012243577

PATIENT
  Age: 29 Year
  Sex: Female

DRUGS (8)
  1. XANOR [Suspect]
     Dosage: 1.5 mg, 1x/day
     Dates: start: 20120729, end: 20120806
  2. XANOR [Suspect]
     Dosage: 1 mg, 1x/day
     Dates: start: 20120807, end: 20120816
  3. XANOR [Suspect]
     Dosage: 0.25 mg, 1x/day
     Dates: start: 20120817, end: 20120817
  4. RISPERDAL [Suspect]
     Dosage: 6 mg, 1x/day
     Dates: start: 20120729, end: 20120808
  5. RISPERDAL [Suspect]
     Dosage: 4 mg, 1x/day
     Dates: start: 20120809, end: 20120821
  6. SOLIAN [Suspect]
     Dosage: 400 mg, 1x/day
     Dates: start: 20120729, end: 20120809
  7. DOMINAL [Suspect]
     Dosage: 160 mg, 1x/day
     Dates: start: 20120729, end: 20120905
  8. AKINETON [Suspect]
     Dosage: 4 mg, 1x/day
     Dates: start: 20120830

REACTIONS (2)
  - Akathisia [Recovered/Resolved]
  - Dyskinesia [Recovered/Resolved]
